FAERS Safety Report 5212076-2 (Version None)
Quarter: 2007Q1

REPORT INFORMATION
  Report Type: 
  Country: None (occurrence: None)
  Receive Date: 20070118
  Receipt Date: 20070112
  Transmission Date: 20070707
  Serious: Yes (Hospitalization, Other)
  Sender: FDA-Public Use
  Company Number: US-ELI_LILLY_AND_COMPANY-US200701002717

PATIENT
  Age: 76 Year
  Sex: Male

DRUGS (2)
  1. HUMULIN 50/50 [Suspect]
     Indication: DIABETES MELLITUS
     Dosage: 30 U, EACH MORNING
     Dates: start: 19950101
  2. HUMULIN 50/50 [Suspect]
     Dosage: 30 U, EACH EVENING
     Dates: start: 19950101

REACTIONS (3)
  - AMNESIA [None]
  - CARDIAC OPERATION [None]
  - CEREBROVASCULAR ACCIDENT [None]
